FAERS Safety Report 7426985-7 (Version None)
Quarter: 2011Q2

REPORT INFORMATION
  Report Type: 
  Country: None (occurrence: None)
  Receive Date: 20110420
  Receipt Date: 20110412
  Transmission Date: 20111010
  Serious: Yes (Hospitalization, Other)
  Sender: FDA-Public Use
  Company Number: US-ABBOTT-11P-163-0718806-00

PATIENT
  Sex: Male
  Weight: 111.68 kg

DRUGS (7)
  1. VITAMIN B-12 [Concomitant]
     Indication: PRODUCT USED FOR UNKNOWN INDICATION
     Dosage: DAILY DOSE: 500MG
  2. PROVENTIL [Concomitant]
     Indication: ASTHMA
  3. ACCOLATE [Concomitant]
     Indication: ASTHMA
     Dosage: DAILY DOSE: 40MG
  4. VITAMIN A [Concomitant]
     Indication: PRODUCT USED FOR UNKNOWN INDICATION
     Dosage: DAILY DOSE: 10000 IU
  5. VITAMIN D [Concomitant]
     Indication: PRODUCT USED FOR UNKNOWN INDICATION
     Dosage: DAILY DOSE: 50000 IU
  6. ADVAIR DISKUS 500/50 [Concomitant]
     Indication: ASTHMA
  7. HUMIRA [Suspect]
     Indication: ANKYLOSING SPONDYLITIS
     Route: 058
     Dates: start: 20090101, end: 20110301

REACTIONS (5)
  - ULCER HAEMORRHAGE [None]
  - INJECTION SITE PAIN [None]
  - POST PROCEDURAL COMPLICATION [None]
  - HAEMOGLOBIN DECREASED [None]
  - ARTERIAL RUPTURE [None]
